FAERS Safety Report 7617389-2 (Version None)
Quarter: 2011Q3

REPORT INFORMATION
  Report Type: 
  Country: None (occurrence: None)
  Receive Date: 20110718
  Receipt Date: 20110713
  Transmission Date: 20111222
  Serious: No
  Sender: FDA-Public Use
  Company Number: US-PFIZER INC-2011158977

PATIENT
  Sex: Female
  Weight: 102.04 kg

DRUGS (6)
  1. ARMODAFINIL [Interacting]
     Indication: SLEEP APNOEA SYNDROME
     Dosage: UNK
  2. MULTI-VITAMINS [Concomitant]
     Indication: VITAMIN SUPPLEMENTATION
     Dosage: UNK
  3. PRISTIQ [Interacting]
     Indication: DEPRESSION
     Dosage: 150 MG, 1X/DAY
     Route: 048
     Dates: start: 20110709
  4. LORATADINE [Concomitant]
     Dosage: UNK
  5. GEODON [Suspect]
     Dosage: UNK
     Dates: start: 20100601, end: 20100601
  6. CYMBALTA [Concomitant]
     Indication: DEPRESSION
     Dosage: UNK

REACTIONS (4)
  - DRUG INTERACTION [None]
  - MUSCLE TIGHTNESS [None]
  - DIARRHOEA [None]
  - PSYCHIATRIC SYMPTOM [None]
